FAERS Safety Report 25395665 (Version 2)
Quarter: 2025Q2

REPORT INFORMATION
  Report Type: Report from Study
  Country: IT (occurrence: IT)
  Receive Date: 20250604
  Receipt Date: 20250615
  Transmission Date: 20250716
  Serious: Yes (Hospitalization, Other)
  Sender: TEVA
  Company Number: IT-TEVA-VS-3337046

PATIENT
  Age: 64 Year
  Sex: Male
  Weight: 91 kg

DRUGS (9)
  1. ARIPIPRAZOLE [Suspect]
     Active Substance: ARIPIPRAZOLE
     Indication: Mental disorder
     Route: 065
     Dates: start: 2022
  2. MIANSERIN [Suspect]
     Active Substance: MIANSERIN
     Indication: Antidepressant therapy
     Route: 065
     Dates: start: 2022
  3. ZOLPIDEM [Suspect]
     Active Substance: ZOLPIDEM TARTRATE
     Indication: Mental disorder
     Route: 065
     Dates: start: 2022
  4. CLONAZEPAM [Suspect]
     Active Substance: CLONAZEPAM
     Indication: Mental disorder
     Route: 065
     Dates: start: 2022
  5. FLUVOXAMINE [Suspect]
     Active Substance: FLUVOXAMINE
     Indication: Antidepressant therapy
     Route: 065
     Dates: start: 2022
  6. FLUVOXAMINE [Suspect]
     Active Substance: FLUVOXAMINE
     Indication: Antidepressant therapy
     Route: 065
     Dates: start: 2022
  7. QUETIAPINE [Suspect]
     Active Substance: QUETIAPINE
     Indication: Mental disorder
     Route: 065
     Dates: start: 2022
  8. LITHIUM [Suspect]
     Active Substance: LITHIUM
     Indication: Mental disorder
     Route: 065
     Dates: start: 2022
  9. PROPRANOLOL [Concomitant]
     Active Substance: PROPRANOLOL HYDROCHLORIDE
     Indication: Hypertension
     Route: 065
     Dates: start: 2022

REACTIONS (1)
  - Serotonin syndrome [Unknown]
